FAERS Safety Report 25106172 (Version 1)
Quarter: 2025Q1

REPORT INFORMATION
  Report Type: Spontaneous
  Country: IT (occurrence: None)
  Receive Date: 20250321
  Receipt Date: 20250321
  Transmission Date: 20250409
  Serious: Yes (Other)
  Sender: INCYTE
  Company Number: IT-002147023-NVSC2025IT045522

PATIENT
  Age: 63 Year

DRUGS (2)
  1. RUXOLITINIB [Suspect]
     Active Substance: RUXOLITINIB
     Indication: VEXAS syndrome
     Route: 065
  2. AZACITIDINE [Concomitant]
     Active Substance: AZACITIDINE
     Indication: VEXAS syndrome
     Route: 065

REACTIONS (2)
  - Off label use [Unknown]
  - Pancytopenia [Unknown]
